FAERS Safety Report 7377300-9 (Version None)
Quarter: 2011Q1

REPORT INFORMATION
  Report Type: 
  Country: None (occurrence: None)
  Receive Date: 20110328
  Receipt Date: 20110317
  Transmission Date: 20110831
  Serious: Yes (Other)
  Sender: FDA-Public Use
  Company Number: US-JNJFOC-20110308216

PATIENT
  Sex: Female
  Weight: 51.71 kg

DRUGS (12)
  1. TRANXENE [Concomitant]
     Indication: MENIERE'S DISEASE
  2. DURAGESIC-50 [Suspect]
     Indication: PAIN
     Route: 062
     Dates: start: 20040101, end: 20080101
  3. DURAGESIC-50 [Suspect]
     Route: 062
  4. NORCO [Concomitant]
     Indication: PAIN
     Dosage: 10/325
     Route: 048
  5. PHRENILIN [Concomitant]
     Indication: CROHN'S DISEASE
     Route: 048
  6. DURAGESIC-50 [Suspect]
     Route: 062
     Dates: start: 20040101, end: 20080101
  7. DURAGESIC-50 [Suspect]
     Route: 062
     Dates: start: 20040101, end: 20080101
  8. FENTANYL-100 [Suspect]
     Indication: PAIN
     Route: 062
  9. POTASSIUM CHLORIDE [Concomitant]
     Indication: MEDICAL DIET
     Route: 048
  10. PHENERGAN [Concomitant]
     Indication: NAUSEA
     Route: 048
  11. LOPRESSOR [Concomitant]
     Indication: PALPITATIONS
     Route: 048
  12. IMURAN [Concomitant]
     Indication: CROHN'S DISEASE
     Route: 048

REACTIONS (7)
  - THYROID DISORDER [None]
  - THERAPEUTIC RESPONSE DECREASED [None]
  - DRUG PRESCRIBING ERROR [None]
  - BURNING SENSATION [None]
  - APPLICATION SITE VESICLES [None]
  - VITAMIN D DEFICIENCY [None]
  - WEIGHT DECREASED [None]
